FAERS Safety Report 9069049 (Version 1)
Quarter: 2013Q1

REPORT INFORMATION
  Report Type: Spontaneous
  Country: US (occurrence: None)
  Receive Date: 20130213
  Receipt Date: 20130213
  Transmission Date: 20140127
  Serious: Yes (Hospitalization)
  Sender: FDA-Public Use
  Company Number: None

PATIENT
  Sex: Female
  Weight: 63.7 kg

DRUGS (1)
  1. BEVACIZUMAB (RTU MAB VEGF) [Suspect]

REACTIONS (4)
  - Fatigue [None]
  - Dyspnoea [None]
  - Azotaemia [None]
  - Haemoglobin decreased [None]
